FAERS Safety Report 10078301 (Version 2)
Quarter: 2014Q2

REPORT INFORMATION
  Report Type: Spontaneous
  Country: IT (occurrence: IT)
  Receive Date: 20140415
  Receipt Date: 20140418
  Transmission Date: 20141212
  Serious: Yes (Hospitalization)
  Sender: FDA-Public Use
  Company Number: IT-ROCHE-1381118

PATIENT
  Age: 47 Year
  Sex: Male

DRUGS (1)
  1. RIVOTRIL [Suspect]
     Indication: PRODUCT USED FOR UNKNOWN INDICATION
     Route: 065
     Dates: start: 20130801, end: 20130801

REACTIONS (3)
  - Miosis [Recovering/Resolving]
  - Somnolence [Recovering/Resolving]
  - Drug abuse [Unknown]
